APPROVED DRUG PRODUCT: RILUZOLE
Active Ingredient: RILUZOLE
Strength: 50MG
Dosage Form/Route: TABLET;ORAL
Application: A091394 | Product #001 | TE Code: AB
Applicant: GLENMARK PHARMACEUTICALS LTD
Approved: Jun 18, 2013 | RLD: No | RS: No | Type: RX